FAERS Safety Report 4630047-1 (Version None)
Quarter: 2005Q2

REPORT INFORMATION
  Report Type: 
  Country: None (occurrence: None)
  Receive Date: 20050408
  Receipt Date: 20050228
  Transmission Date: 20051028
  Serious: Yes (Hospitalization, Disabling)
  Sender: FDA-Public Use
  Company Number: CA-ROCHE-400813

PATIENT
  Age: 20 Year
  Sex: Female

DRUGS (1)
  1. ACCUTANE [Suspect]
     Indication: ACNE
     Route: 048
     Dates: start: 19960910

REACTIONS (7)
  - ABDOMINAL PAIN [None]
  - CHOLECYSTITIS [None]
  - CROHN'S DISEASE [None]
  - GASTRITIS [None]
  - INFLAMMATORY BOWEL DISEASE [None]
  - PAIN [None]
  - POLYARTHRITIS [None]
